FAERS Safety Report 9846829 (Version 1)
Quarter: 2013Q4

REPORT INFORMATION
  Report Type: Spontaneous
  Country: US (occurrence: None)
  Receive Date: 20131219
  Receipt Date: 20131219
  Transmission Date: 20140711
  Serious: Yes (Disabling)
  Sender: FDA-Public Use
  Company Number: 163-20785-13073706

PATIENT
  Age: 81 Year
  Sex: Male

DRUGS (2)
  1. THALOMID [Suspect]
     Indication: PLASMA CELL MYELOMA
     Route: 048
     Dates: start: 201012
  2. PREDNISONE [Concomitant]

REACTIONS (5)
  - Axonal neuropathy [None]
  - Gait disturbance [None]
  - Hypoaesthesia [None]
  - Vascular pain [None]
  - Balance disorder [None]
